FAERS Safety Report 21360327 (Version 1)
Quarter: 2022Q3

REPORT INFORMATION
  Report Type: Spontaneous
  Country: US (occurrence: US)
  Receive Date: 20220921
  Receipt Date: 20220921
  Transmission Date: 20221027
  Serious: Yes (Other)
  Sender: FDA-Public Use
  Company Number: US-GSK-US2022132462

PATIENT

DRUGS (5)
  1. ANORO ELLIPTA [Suspect]
     Active Substance: UMECLIDINIUM BROMIDE\VILANTEROL TRIFENATATE
     Indication: Chronic obstructive pulmonary disease
     Dosage: UNK
     Dates: start: 20210410
  2. IMITREX [Interacting]
     Active Substance: SUMATRIPTAN SUCCINATE
     Indication: Product used for unknown indication
     Dosage: UNK
  3. ENTRESTO [Concomitant]
     Active Substance: SACUBITRIL\VALSARTAN
     Indication: Cardiomyopathy
     Dosage: 24-26 MG
     Dates: start: 20170101
  4. METOPROLOL [Concomitant]
     Active Substance: METOPROLOL
     Indication: Heart rate
     Dosage: 25 MG
     Dates: start: 20170101
  5. SPIRONOLACTONE [Concomitant]
     Active Substance: SPIRONOLACTONE
     Indication: Atrioventricular block
     Dosage: 25 MG
     Dates: start: 20170101

REACTIONS (6)
  - Cardiomyopathy [Unknown]
  - Cardiac failure [Unknown]
  - Migraine [Recovering/Resolving]
  - Chronic obstructive pulmonary disease [Unknown]
  - Pain [Unknown]
  - Labelled drug-disease interaction issue [Unknown]

NARRATIVE: CASE EVENT DATE: 20220830
